FAERS Safety Report 12838769 (Version 2)
Quarter: 2016Q4

REPORT INFORMATION
  Report Type: Spontaneous
  Country: US (occurrence: US)
  Receive Date: 20161012
  Receipt Date: 20161024
  Transmission Date: 20170207
  Serious: No
  Sender: FDA-Public Use
  Company Number: US-PFIZER INC-2016459236

PATIENT
  Age: 65 Year
  Sex: Male

DRUGS (4)
  1. JANTOVEN [Concomitant]
     Active Substance: WARFARIN SODIUM
     Indication: THROMBOSIS
     Dosage: 5 MG, WEEKLY(5 DAYS A WEEK )
  2. TIKOSYN [Suspect]
     Active Substance: DOFETILIDE
     Indication: ATRIAL FIBRILLATION
     Dosage: 500 UG, TWICE A DAY
     Dates: start: 20140425
  3. LISINOPRIL. [Concomitant]
     Active Substance: LISINOPRIL
     Indication: BLOOD PRESSURE MEASUREMENT
     Dosage: 10 MG, ONCE A DAY
  4. JANTOVEN [Concomitant]
     Active Substance: WARFARIN SODIUM
     Dosage: UNK(7.5 ON M + F)

REACTIONS (6)
  - Dizziness [Not Recovered/Not Resolved]
  - Hypoaesthesia [Not Recovered/Not Resolved]
  - Condition aggravated [Not Recovered/Not Resolved]
  - Hypoacusis [Not Recovered/Not Resolved]
  - Amnesia [Unknown]
  - Feeling abnormal [Not Recovered/Not Resolved]

NARRATIVE: CASE EVENT DATE: 201407
